FAERS Safety Report 8360158-9 (Version None)
Quarter: 2012Q2

REPORT INFORMATION
  Report Type: 
  Country: None (occurrence: None)
  Receive Date: 20120515
  Receipt Date: 20110620
  Transmission Date: 20120825
  Serious: No
  Sender: FDA-Public Use
  Company Number: US-ALEXION-A201100920

PATIENT
  Sex: Male

DRUGS (4)
  1. VITAMIN B-12 [Concomitant]
     Dosage: UNK
  2. SOLIRIS [Suspect]
     Dosage: 1200 MG, Q2W
     Route: 042
     Dates: start: 20100410
  3. SOLIRIS [Suspect]
     Indication: PAROXYSMAL NOCTURNAL HAEMOGLOBINURIA
     Dosage: UNK
     Route: 042
     Dates: start: 20091020
  4. FOLIC ACID [Concomitant]
     Dosage: UNK

REACTIONS (5)
  - HAEMOGLOBIN DECREASED [None]
  - BLOOD IRON INCREASED [None]
  - FATIGUE [None]
  - BLOOD LACTATE DEHYDROGENASE ABNORMAL [None]
  - HAEMATOCRIT DECREASED [None]
